FAERS Safety Report 5554892-3 (Version None)
Quarter: 2007Q4

REPORT INFORMATION
  Report Type: 
  Country: None (occurrence: None)
  Receive Date: 20071213
  Receipt Date: 20070805
  Transmission Date: 20080405
  Serious: No
  Sender: FDA-Public Use
  Company Number: US-AMGEN-KDL237567

PATIENT
  Sex: Female

DRUGS (2)
  1. ENBREL [Suspect]
     Indication: ANKYLOSING SPONDYLITIS
     Route: 058
     Dates: start: 20040715, end: 20050301
  2. METHOTREXATE [Concomitant]
     Route: 048
     Dates: start: 20040601

REACTIONS (7)
  - DISEASE PROGRESSION [None]
  - FALL [None]
  - GAIT DISTURBANCE [None]
  - HEPATIC ENZYME INCREASED [None]
  - INJECTION SITE PAIN [None]
  - MIGRAINE [None]
  - MUSCULOSKELETAL PAIN [None]
